FAERS Safety Report 12305231 (Version 1)
Quarter: 2016Q2

REPORT INFORMATION
  Report Type: Spontaneous
  Country: IT (occurrence: IT)
  Receive Date: 20160426
  Receipt Date: 20160426
  Transmission Date: 20160815
  Serious: Yes (Other)
  Sender: FDA-Public Use
  Company Number: IT-WATSON-2016-08667

PATIENT
  Age: 55 Year
  Sex: Female

DRUGS (2)
  1. PEMETREXED (UNKNOWN) [Suspect]
     Active Substance: PEMETREXED
     Indication: LUNG SQUAMOUS CELL CARCINOMA STAGE IV
     Dosage: 500 MG/M2, CYCLICAL
     Route: 042
     Dates: start: 20151110, end: 20160203
  2. CARBOPLATIN (UNKNOWN) [Suspect]
     Active Substance: CARBOPLATIN
     Indication: LUNG SQUAMOUS CELL CARCINOMA STAGE IV
     Dosage: UNK, CYCLICAL
     Route: 042
     Dates: start: 20151111, end: 20160204

REACTIONS (3)
  - Thrombocytopenia [Recovered/Resolved]
  - Neutropenia [Recovered/Resolved]
  - Anaemia [Recovered/Resolved]

NARRATIVE: CASE EVENT DATE: 20160222
